FAERS Safety Report 19749424 (Version 1)
Quarter: 2021Q3

REPORT INFORMATION
  Report Type: Spontaneous
  Country: US (occurrence: US)
  Receive Date: 20210825
  Receipt Date: 20210825
  Transmission Date: 20211014
  Serious: Yes (Other)
  Sender: FDA-Public Use
  Company Number: None

PATIENT
  Age: 35 Year
  Sex: Male

DRUGS (1)
  1. MITROGYNA SPECIOSA [Suspect]
     Active Substance: HERBALS\MITRAGYNINE

REACTIONS (3)
  - Road traffic accident [None]
  - Generalised tonic-clonic seizure [None]
  - Withdrawal syndrome [None]

NARRATIVE: CASE EVENT DATE: 20180204
